FAERS Safety Report 16000979 (Version 1)
Quarter: 2019Q1

REPORT INFORMATION
  Report Type: Spontaneous
  Country: US (occurrence: US)
  Receive Date: 20190130
  Receipt Date: 20190130
  Transmission Date: 20190418
  Serious: No
  Sender: FDA-Public Use
  Company Number: None

PATIENT
  Age: 62 Year
  Sex: Female
  Weight: 83.46 kg

DRUGS (1)
  1. ATORVASTATIN [Suspect]
     Active Substance: ATORVASTATIN
     Indication: HYPERCHOLESTEROLAEMIA
     Route: 048
     Dates: start: 20130505, end: 20130515

REACTIONS (4)
  - Myalgia [None]
  - Gait disturbance [None]
  - Asthenia [None]
  - Therapeutic response changed [None]

NARRATIVE: CASE EVENT DATE: 20130515
